FAERS Safety Report 22963263 (Version 4)
Quarter: 2024Q1

REPORT INFORMATION
  Report Type: Report from Study
  Country: ES (occurrence: ES)
  Receive Date: 20230920
  Receipt Date: 20240101
  Transmission Date: 20240410
  Serious: Yes (Death, Hospitalization, Other)
  Sender: FDA-Public Use
  Company Number: ES-BRISTOL-MYERS SQUIBB COMPANY-2023-125276

PATIENT
  Age: 77 Year
  Sex: Male
  Weight: 76.3 kg

DRUGS (28)
  1. DEXAMETHASONE [Suspect]
     Active Substance: DEXAMETHASONE
     Indication: Plasma cell myeloma
     Route: 048
     Dates: start: 20230629, end: 20230629
  2. DEXAMETHASONE [Suspect]
     Active Substance: DEXAMETHASONE
     Route: 048
     Dates: start: 20230713, end: 20230713
  3. DEXAMETHASONE [Suspect]
     Active Substance: DEXAMETHASONE
     Route: 048
     Dates: start: 20230720, end: 20230816
  4. DEXAMETHASONE [Suspect]
     Active Substance: DEXAMETHASONE
     Route: 048
     Dates: start: 20230706, end: 20230706
  5. ISATUXIMAB [Suspect]
     Active Substance: ISATUXIMAB
     Indication: Plasma cell myeloma
     Dosage: 29-JUN-2023 11:35:00 / 29-JUN-2023 12:09:00 34 MIN, ACTUAL DOSE OF 780 MG
     Route: 042
     Dates: start: 20230629, end: 20230629
  6. ISATUXIMAB [Suspect]
     Active Substance: ISATUXIMAB
     Dosage: 29-JUN-2023 11:35:00 / 29-JUN-2023 12:09:00 34 MIN ACTUAL DOSE OF 790 MG
     Route: 042
     Dates: start: 20230629, end: 20230726
  7. ISATUXIMAB [Suspect]
     Active Substance: ISATUXIMAB
     Route: 042
  8. LENALIDOMIDE [Suspect]
     Active Substance: LENALIDOMIDE
     Indication: Plasma cell myeloma
     Route: 048
     Dates: start: 20230629, end: 20230629
  9. LENALIDOMIDE [Suspect]
     Active Substance: LENALIDOMIDE
     Route: 048
     Dates: start: 20230719, end: 20230719
  10. LENALIDOMIDE [Suspect]
     Active Substance: LENALIDOMIDE
     Route: 048
     Dates: start: 20191021, end: 20230719
  11. LEVOFLOXACIN [Concomitant]
     Active Substance: LEVOFLOXACIN
     Indication: Prophylaxis
     Route: 065
     Dates: start: 20191021
  12. ACYCLOVIR [Concomitant]
     Active Substance: ACYCLOVIR
     Indication: Prophylaxis
     Route: 048
     Dates: start: 20221114
  13. SILODOSIN [Concomitant]
     Active Substance: SILODOSIN
     Indication: Prophylaxis
     Dates: start: 20221114
  14. PREGABALIN [Concomitant]
     Active Substance: PREGABALIN
     Indication: Prophylaxis
     Route: 048
     Dates: start: 20221114
  15. LACTULOSE [Concomitant]
     Active Substance: LACTULOSE
     Indication: Prophylaxis
     Dates: start: 20221114
  16. DEXCHLORPHENIRAMINE [Concomitant]
     Active Substance: DEXCHLORPHENIRAMINE
     Indication: Prophylaxis
     Dosage: TOTAL DAILY DOSE
     Route: 042
     Dates: start: 20230726, end: 20230726
  17. DEXCHLORPHENIRAMINE [Concomitant]
     Active Substance: DEXCHLORPHENIRAMINE
     Dosage: TOTAL DAILY DOSE
     Route: 042
     Dates: start: 20230629, end: 20230629
  18. ASPIRIN [Concomitant]
     Active Substance: ASPIRIN
     Indication: Prophylaxis
     Dates: start: 20221114
  19. NALOXONE HYDROCHLORIDE\OXYCODONE HYDROCHLORIDE [Concomitant]
     Active Substance: NALOXONE HYDROCHLORIDE\OXYCODONE HYDROCHLORIDE
     Indication: Product used for unknown indication
     Dates: start: 20230823
  20. OMEPRAZOLE [Concomitant]
     Active Substance: OMEPRAZOLE
     Indication: Prophylaxis against gastrointestinal ulcer
     Dates: start: 20221114
  21. ACETAMINOPHEN [Concomitant]
     Active Substance: ACETAMINOPHEN
     Indication: Prophylaxis
     Dosage: TOTAL DAILY DOSE
     Route: 048
     Dates: start: 20230629, end: 20230629
  22. ACETAMINOPHEN [Concomitant]
     Active Substance: ACETAMINOPHEN
     Dosage: TOTAL DAILY DOSE
     Route: 048
     Dates: start: 20230726, end: 20230726
  23. FAMOTIDINE [Concomitant]
     Active Substance: FAMOTIDINE
     Indication: Prophylaxis
     Dosage: TOTAL DAILY DOSE
     Route: 048
     Dates: start: 20230629, end: 20230629
  24. BUSCAPINA [HYOSCINE BUTYLBROMIDE] [Concomitant]
     Indication: Abdominal pain
     Route: 048
  25. AMLODIPINE [Concomitant]
     Active Substance: AMLODIPINE BESYLATE
     Indication: Hypertension
     Route: 048
     Dates: start: 20191008
  26. ASPIRIN [Concomitant]
     Active Substance: ASPIRIN
     Indication: Anticoagulant therapy
     Route: 048
     Dates: start: 20191012
  27. OXYCODONE/NALOXONE G.L. [Concomitant]
     Indication: Pain
     Dosage: 10MG/5MG
     Route: 048
     Dates: start: 20230901
  28. DULOXETINE [Concomitant]
     Active Substance: DULOXETINE
     Indication: Depression
     Route: 048
     Dates: start: 20221114

REACTIONS (5)
  - Pain [Not Recovered/Not Resolved]
  - Neuroendocrine tumour of the lung metastatic [Fatal]
  - Hepatic cancer [Fatal]
  - Acute kidney injury [Fatal]
  - Off label use [Unknown]

NARRATIVE: CASE EVENT DATE: 20230823
